FAERS Safety Report 9023835 (Version 3)
Quarter: 2013Q3

REPORT INFORMATION
  Report Type: Report from Study
  Country: BR (occurrence: BR)
  Receive Date: 20130121
  Receipt Date: 20130720
  Transmission Date: 20140515
  Serious: Yes (Hospitalization)
  Sender: FDA-Public Use
  Company Number: BR-US-EMD SERONO, INC.-7187729

PATIENT
  Age: 22 Year
  Sex: Female

DRUGS (4)
  1. REBIF [Suspect]
     Indication: RELAPSING-REMITTING MULTIPLE SCLEROSIS
     Dates: start: 201207, end: 20121114
  2. REBIF [Suspect]
     Dates: start: 20121115
  3. TOPIRAMATE [Concomitant]
     Indication: PRODUCT USED FOR UNKNOWN INDICATION
  4. CLONAZEPAM [Concomitant]
     Indication: INSOMNIA

REACTIONS (2)
  - Multiple sclerosis relapse [Recovering/Resolving]
  - Urinary tract infection [Recovering/Resolving]
